FAERS Safety Report 9372044 (Version 1)
Quarter: 2013Q2

REPORT INFORMATION
  Report Type: Spontaneous
  Country: US (occurrence: US)
  Receive Date: 20130627
  Receipt Date: 20130627
  Transmission Date: 20140414
  Serious: Yes (Hospitalization)
  Sender: FDA-Public Use
  Company Number: US-BAYER-2013-078203

PATIENT
  Age: 29 Year
  Sex: Female

DRUGS (3)
  1. YAZ [Suspect]
     Indication: CONTRACEPTION
  2. EFFEXOR XR [Concomitant]
     Dosage: 75 MG, UNK
     Route: 048
  3. FLUTICASONE W/SALMETEROL [Concomitant]
     Dosage: 1 PUFF(S), UNK
     Route: 055

REACTIONS (2)
  - Pulmonary embolism [None]
  - Deep vein thrombosis [None]
